FAERS Safety Report 5781993-7 (Version None)
Quarter: 2008Q2

REPORT INFORMATION
  Report Type: 
  Country: None (occurrence: None)
  Receive Date: 20080623
  Receipt Date: 20080616
  Transmission Date: 20081010
  Serious: Yes (Hospitalization)
  Sender: FDA-Public Use
  Company Number: JP-AVENTIS-200811752JP

PATIENT
  Age: 73 Year
  Sex: Male

DRUGS (6)
  1. LANTUS [Suspect]
     Dosage: DOSE: 2 UNITS
     Route: 058
  2. NOVORAPID [Suspect]
  3. KINEDAK [Concomitant]
     Route: 048
  4. MICARDIS [Concomitant]
     Route: 048
  5. MAGNESIUM OXIDE [Concomitant]
     Route: 048
  6. ALDACTONE [Concomitant]
     Route: 048

REACTIONS (2)
  - HYPOGLYCAEMIA [None]
  - ILEUS PARALYTIC [None]
